FAERS Safety Report 13814825 (Version 1)
Quarter: 2017Q3

REPORT INFORMATION
  Report Type: Spontaneous
  Country: US (occurrence: US)
  Receive Date: 20170731
  Receipt Date: 20170731
  Transmission Date: 20171127
  Serious: No
  Sender: FDA-Public Use
  Company Number: US-BAYER-2017-137852

PATIENT
  Age: 53 Year
  Sex: Female
  Weight: 68 kg

DRUGS (1)
  1. MIRALAX [Suspect]
     Active Substance: POLYETHYLENE GLYCOL 3350
     Indication: GASTROINTESTINAL DISORDER
     Dosage: 6 DF
     Route: 048

REACTIONS (5)
  - Malabsorption [Unknown]
  - Diarrhoea [Unknown]
  - Malnutrition [Unknown]
  - Product use in unapproved indication [Unknown]
  - Gastrointestinal hypermotility [Unknown]

NARRATIVE: CASE EVENT DATE: 201701
